FAERS Safety Report 24029086 (Version 1)
Quarter: 2024Q2

REPORT INFORMATION
  Report Type: Spontaneous
  Country: US (occurrence: None)
  Receive Date: 20240628
  Receipt Date: 20240628
  Transmission Date: 20240716
  Serious: No
  Sender: FDA-Public Use
  Company Number: None

PATIENT
  Age: 66 Year
  Sex: Female

DRUGS (1)
  1. ENBREL [Suspect]
     Active Substance: BENZYL ALCOHOL\ETANERCEPT
     Indication: Psoriasis
     Dosage: INJECT 50MG SUBCUTANEOUSLY TWO TIMES A WEEK  72. 96 HOURS  APART FOR 3 MONTHS AS DIRECTED?
     Route: 058
     Dates: start: 202310

REACTIONS (2)
  - Therapy interrupted [None]
  - Infection [None]
